FAERS Safety Report 5615516-X (Version None)
Quarter: 2008Q1

REPORT INFORMATION
  Report Type: 
  Country: None (occurrence: None)
  Receive Date: 20080206
  Receipt Date: 20080130
  Transmission Date: 20080703
  Serious: Yes (Other)
  Sender: FDA-Public Use
  Company Number: B0506562A

PATIENT
  Sex: Female

DRUGS (1)
  1. NIQUITIN CQ 2MG LOZENGE [Suspect]
     Route: 065

REACTIONS (1)
  - DEPENDENCE [None]
